FAERS Safety Report 9684825 (Version 2)
Quarter: 2013Q4

REPORT INFORMATION
  Report Type: Spontaneous
  Country: JP (occurrence: JP)
  Receive Date: 20131112
  Receipt Date: 20131112
  Transmission Date: 20140711
  Serious: Yes (Other)
  Sender: FDA-Public Use
  Company Number: PHHY2013JP124286

PATIENT
  Age: 9 Year
  Sex: Male

DRUGS (3)
  1. CARBAMAZEPINE [Suspect]
     Indication: EPILEPSY
     Route: 048
  2. PHENOBARBITAL [Suspect]
  3. ZONISAMIDE [Suspect]

REACTIONS (4)
  - Hepatic function abnormal [Unknown]
  - Convulsion [Unknown]
  - Condition aggravated [Unknown]
  - Temperature regulation disorder [Unknown]
